FAERS Safety Report 10653373 (Version 3)
Quarter: 2015Q1

REPORT INFORMATION
  Report Type: Report from Study
  Country: ID (occurrence: ID)
  Receive Date: 20141215
  Receipt Date: 20150205
  Transmission Date: 20150720
  Serious: Yes (Hospitalization, Other)
  Sender: FDA-Public Use
  Company Number: ID-ROCHE-1507217

PATIENT
  Age: 60 Year
  Sex: Female

DRUGS (1)
  1. HERCEPTIN [Suspect]
     Active Substance: TRASTUZUMAB
     Indication: BREAST CANCER METASTATIC
     Route: 065

REACTIONS (7)
  - Pruritus generalised [Unknown]
  - Dehydration [Unknown]
  - Decreased appetite [Unknown]
  - General physical health deterioration [Unknown]
  - Rash pustular [Not Recovered/Not Resolved]
  - Nausea [Unknown]
  - Vomiting [Unknown]
